FAERS Safety Report 9254896 (Version 11)
Quarter: 2013Q4

REPORT INFORMATION
  Report Type: Spontaneous
  Country: BR (occurrence: BR)
  Receive Date: 20130425
  Receipt Date: 20131112
  Transmission Date: 20140711
  Serious: Yes (Other)
  Sender: FDA-Public Use
  Company Number: PHHY2013BR040249

PATIENT
  Sex: Female
  Weight: 75 kg

DRUGS (4)
  1. RITALINA [Suspect]
     Indication: NARCOLEPSY
     Dosage: 8 DF(6 TO 8 TABLETS), DAILY
     Route: 048
  2. RITALIN LA [Suspect]
     Indication: NARCOLEPSY
     Dosage: 1 DF, QD
     Route: 048
     Dates: start: 201304
  3. STAVIGILE [Suspect]
     Indication: SLEEP DISORDER
     Dosage: 4 DF, UNK
     Route: 048
  4. VENLAFAXINE [Concomitant]
     Indication: WAXY FLEXIBILITY
     Dosage: 75 MG, UNK
     Route: 048

REACTIONS (17)
  - Syncope [Not Recovered/Not Resolved]
  - Suicidal ideation [Unknown]
  - Drug dependence [Not Recovered/Not Resolved]
  - Hallucination, visual [Unknown]
  - Convulsion [Unknown]
  - Depression [Not Recovered/Not Resolved]
  - Crying [Not Recovered/Not Resolved]
  - Abnormal behaviour [Unknown]
  - Fall [Unknown]
  - Sleep disorder [Not Recovered/Not Resolved]
  - Somnolence [Unknown]
  - Drug hypersensitivity [Unknown]
  - Narcolepsy [Unknown]
  - Dyskinesia [Unknown]
  - Incorrect dose administered [Unknown]
  - Waxy flexibility [Unknown]
  - Drug ineffective [Unknown]
